FAERS Safety Report 7247608-6 (Version None)
Quarter: 2011Q1

REPORT INFORMATION
  Report Type: 
  Country: None (occurrence: None)
  Receive Date: 20110127
  Receipt Date: 20110121
  Transmission Date: 20110831
  Serious: Yes (Life-Threatening, Hospitalization)
  Sender: FDA-Public Use
  Company Number: JP-ROCHE-744119

PATIENT
  Sex: Male

DRUGS (8)
  1. XELODA [Suspect]
     Dosage: STOP DATE: 2010
     Route: 048
     Dates: start: 20100831
  2. ELPLAT [Suspect]
     Dosage: NOTE: DOSAGE IS UNCERTAIN
     Route: 041
     Dates: start: 20100831, end: 20100831
  3. ASPIRIN [Suspect]
     Indication: CAROTID ARTERY STENOSIS
     Dosage: NOTE: DOSAGE IS UNCERTAIN,DOSE FORM: ENTERIC COATING DRUG
     Route: 048
     Dates: end: 20100101
  4. XELODA [Suspect]
     Route: 048
     Dates: start: 20100810, end: 20100801
  5. ASPIRIN [Suspect]
     Dosage: NOTE: DOSAGE IS UNCERTAIN. DOSE FORM: ENTERIC COATING DRUG
     Route: 048
     Dates: start: 20100923
  6. XELODA [Suspect]
     Indication: COLON CANCER
     Dosage: STOP DATE: 2010
     Route: 048
     Dates: start: 20100715
  7. ELPLAT [Suspect]
     Indication: COLON CANCER
     Dosage: NOTE: DOSAGE IS UNCERTAIN
     Route: 041
     Dates: start: 20100715, end: 20100715
  8. ELPLAT [Suspect]
     Dosage: NOTE: DOSAGE IS UNCERTAIN
     Route: 041
     Dates: start: 20100810, end: 20100810

REACTIONS (15)
  - DIABETES MELLITUS INADEQUATE CONTROL [None]
  - STOMATITIS [None]
  - MALAISE [None]
  - DIZZINESS [None]
  - HYPOGEUSIA [None]
  - DECREASED APPETITE [None]
  - DIARRHOEA [None]
  - SHOCK [None]
  - GLOSSODYNIA [None]
  - ILEUS [None]
  - ENTEROCOLITIS [None]
  - BLISTER [None]
  - DUODENAL ULCER HAEMORRHAGE [None]
  - DUODENAL ULCER [None]
  - PIGMENTATION DISORDER [None]
